FAERS Safety Report 7280245-6 (Version None)
Quarter: 2011Q1

REPORT INFORMATION
  Report Type: 
  Country: None (occurrence: None)
  Receive Date: 20110208
  Receipt Date: 20110126
  Transmission Date: 20110831
  Serious: Yes (Other)
  Sender: FDA-Public Use
  Company Number: ES-ASTELLAS-2011EU000597

PATIENT
  Sex: Male

DRUGS (3)
  1. CORTICOSTEROID NOS [Suspect]
     Indication: NEPHROTIC SYNDROME
     Dosage: UNK
     Route: 065
     Dates: end: 20100701
  2. PROGRAF [Suspect]
     Indication: NEPHROTIC SYNDROME
     Dosage: UNK
     Route: 065
     Dates: start: 20091001
  3. CELLCEPT [Suspect]
     Indication: NEPHROTIC SYNDROME
     Dosage: UNK
     Route: 065
     Dates: start: 20091001

REACTIONS (3)
  - MYOPATHY [None]
  - OFF LABEL USE [None]
  - MUSCULOSKELETAL PAIN [None]
